FAERS Safety Report 8962217 (Version 1)
Quarter: 2012Q4

REPORT INFORMATION
  Report Type: 
  Country: US (occurrence: US)
  Receive Date: 20121212
  Receipt Date: 20121212
  Transmission Date: 20130627
  Serious: No
  Sender: FDA-Public Use
  Company Number: US-PFIZER INC-2012308014

PATIENT
  Age: 72 Year
  Sex: Female
  Weight: 49.89 kg

DRUGS (1)
  1. PANTOPRAZOLE [Suspect]
     Indication: STOMACH ACHE
     Dosage: 40 mg, daily
     Dates: start: 201211

REACTIONS (2)
  - Drug ineffective [Unknown]
  - Diarrhoea [Unknown]
